FAERS Safety Report 6228349-0 (Version None)
Quarter: 2009Q2

REPORT INFORMATION
  Report Type: 
  Country: None (occurrence: None)
  Receive Date: 20090612
  Receipt Date: 20090602
  Transmission Date: 20091009
  Serious: Yes (Other)
  Sender: FDA-Public Use
  Company Number: US-PFIZER INC-2009222275

PATIENT
  Sex: Female

DRUGS (2)
  1. LYRICA [Suspect]
  2. TOPAMAX [Suspect]

REACTIONS (6)
  - ABDOMINAL PAIN UPPER [None]
  - BREAKTHROUGH PAIN [None]
  - BRONCHITIS [None]
  - INFECTION [None]
  - SURGERY [None]
  - WHITE BLOOD CELL COUNT DECREASED [None]
